FAERS Safety Report 4629495-5 (Version None)
Quarter: 2005Q2

REPORT INFORMATION
  Report Type: 
  Country: None (occurrence: None)
  Receive Date: 20050405
  Receipt Date: 20050323
  Transmission Date: 20051028
  Serious: Yes (Other)
  Sender: FDA-Public Use
  Company Number: 2005043372

PATIENT
  Age: 6 Year
  Sex: Female
  Weight: 28.3 kg

DRUGS (6)
  1. PREDNISONE [Suspect]
     Indication: NEPHROTIC SYNDROME
     Dosage: (1 D),
     Dates: start: 20010401, end: 20021101
  2. CYCLOSPORINE [Concomitant]
  3. METHYLPREDNISOLONE [Concomitant]
  4. IMMUNE GLOBULIN INTRAVENOUS (HUMAN) [Concomitant]
  5. FLUVASTATIN (FLUVASTATIN) [Concomitant]
  6. CYCLOPHOSPHAMIDE [Concomitant]

REACTIONS (5)
  - BACK PAIN [None]
  - BONE DENSITY DECREASED [None]
  - LIPOMATOSIS [None]
  - SPINAL COMPRESSION FRACTURE [None]
  - THERAPY NON-RESPONDER [None]
